FAERS Safety Report 15822220 (Version 1)
Quarter: 2018Q4

REPORT INFORMATION
  Report Type: Spontaneous
  Country: US (occurrence: US)
  Receive Date: 20181214
  Receipt Date: 20181214
  Transmission Date: 20190205
  Serious: Yes (Hospitalization)
  Sender: FDA-Public Use
  Company Number: None

PATIENT
  Age: 79 Year
  Sex: Male
  Weight: 87.09 kg

DRUGS (1)
  1. AMLODIPINE [Suspect]
     Active Substance: AMLODIPINE BESYLATE
     Indication: HYPERTENSION
     Route: 048
     Dates: start: 20180719, end: 20180723

REACTIONS (8)
  - Hemiparesis [None]
  - Fall [None]
  - Incorrect dose administered [None]
  - Hypotension [None]
  - Hypertension [None]
  - Mental status changes [None]
  - Cerebral artery embolism [None]
  - Syncope [None]

NARRATIVE: CASE EVENT DATE: 20180723
